FAERS Safety Report 9888492 (Version 1)
Quarter: 2014Q1

REPORT INFORMATION
  Report Type: Spontaneous
  Country: US (occurrence: US)
  Receive Date: 20140211
  Receipt Date: 20140211
  Transmission Date: 20141002
  Serious: Yes (Other)
  Sender: FDA-Public Use
  Company Number: US-BAYER-2014-019127

PATIENT
  Age: 46 Year
  Sex: Female

DRUGS (2)
  1. MIRENA [Suspect]
     Indication: CONTRACEPTION
     Dosage: UNK
     Route: 015
     Dates: start: 20090123
  2. MIRENA [Suspect]
     Indication: MENORRHAGIA

REACTIONS (8)
  - Embedded device [Not Recovered/Not Resolved]
  - Cystitis [None]
  - Abdominal pain [Not Recovered/Not Resolved]
  - Device difficult to use [None]
  - Pain [Not Recovered/Not Resolved]
  - Anxiety [Not Recovered/Not Resolved]
  - Diarrhoea [None]
  - Nausea [None]
